FAERS Safety Report 4880646-7 (Version None)
Quarter: 2006Q1

REPORT INFORMATION
  Report Type: 
  Country: None (occurrence: None)
  Receive Date: 20060113
  Receipt Date: 20050218
  Transmission Date: 20060701
  Serious: Yes (Hospitalization, Disabling)
  Sender: FDA-Public Use
  Company Number: US-MERCK-0502USA02709

PATIENT
  Age: 62 Year
  Sex: Female
  Weight: 105 kg

DRUGS (6)
  1. VIOXX [Suspect]
     Route: 048
     Dates: start: 20010101, end: 20040101
  2. ATENOLOL [Concomitant]
     Route: 048
  3. DIOVAN [Concomitant]
     Route: 048
  4. PREMPRO [Concomitant]
     Route: 065
  5. LOVENOX [Concomitant]
     Route: 048
  6. PRAVACHOL [Concomitant]
     Route: 048

REACTIONS (32)
  - ACUTE MYOCARDIAL INFARCTION [None]
  - ANAEMIA [None]
  - ARTERIOSCLEROSIS [None]
  - BACK PAIN [None]
  - BRONCHITIS [None]
  - CARDIOVASCULAR DISORDER [None]
  - CAROTID ARTERY ATHEROMA [None]
  - CARPAL TUNNEL SYNDROME [None]
  - CEREBROVASCULAR ACCIDENT [None]
  - CHEST PAIN [None]
  - CORONARY ARTERY DISEASE [None]
  - DIZZINESS [None]
  - DRUG HYPERSENSITIVITY [None]
  - DRUG INEFFECTIVE [None]
  - DYSPEPSIA [None]
  - DYSPNOEA [None]
  - EMOTIONAL DISTRESS [None]
  - FOOD ALLERGY [None]
  - GASTROOESOPHAGEAL REFLUX DISEASE [None]
  - HELICOBACTER INFECTION [None]
  - HEPATIC ENZYME INCREASED [None]
  - HEPATIC STEATOSIS [None]
  - HYPERSENSITIVITY [None]
  - IRON DEFICIENCY ANAEMIA [None]
  - MYOCARDIAL ISCHAEMIA [None]
  - PARAESTHESIA [None]
  - SINUSITIS [None]
  - SPINAL OSTEOARTHRITIS [None]
  - STOMACH DISCOMFORT [None]
  - STRESS INCONTINENCE [None]
  - TRANSIENT ISCHAEMIC ATTACK [None]
  - VERTIGO [None]
